FAERS Safety Report 20141594 (Version 1)
Quarter: 2021Q4

REPORT INFORMATION
  Report Type: Spontaneous
  Country: CN (occurrence: CN)
  Receive Date: 20211202
  Receipt Date: 20211202
  Transmission Date: 20220303
  Serious: Yes (Hospitalization)
  Sender: FDA-Public Use
  Company Number: CN-ABBVIE-21K-035-4180717-00

PATIENT
  Age: 43 Year
  Sex: Male
  Weight: 78 kg

DRUGS (1)
  1. VALPROATE SODIUM [Suspect]
     Active Substance: VALPROATE SODIUM
     Indication: Epilepsy
     Route: 048
     Dates: start: 20211025, end: 20211115

REACTIONS (3)
  - Increased appetite [Unknown]
  - Tremor [Unknown]
  - Ammonia increased [Unknown]

NARRATIVE: CASE EVENT DATE: 20211114
